FAERS Safety Report 15255834 (Version 1)
Quarter: 2018Q3

REPORT INFORMATION
  Report Type: Spontaneous
  Country: US (occurrence: US)
  Receive Date: 20180808
  Receipt Date: 20180808
  Transmission Date: 20181010
  Serious: No
  Sender: FDA-Public Use
  Company Number: US-BAYER-2018-144131

PATIENT

DRUGS (4)
  1. RECTOQUINTYL [CINEOLE,ETHYL ORTHOFORMATE,THYMUS SERPYLLUM ESSENTIA [Concomitant]
  2. VOLTAREN [Concomitant]
     Active Substance: DICLOFENAC SODIUM
  3. SAGE. [Concomitant]
     Active Substance: SAGE
  4. ALEVE [Suspect]
     Active Substance: NAPROXEN SODIUM

REACTIONS (3)
  - Abdominal pain upper [None]
  - Abdominal discomfort [None]
  - Dyspepsia [None]
